FAERS Safety Report 22084009 (Version 1)
Quarter: 2023Q1

REPORT INFORMATION
  Report Type: Report from Study
  Country: AR (occurrence: AR)
  Receive Date: 20230310
  Receipt Date: 20230310
  Transmission Date: 20230417
  Serious: Yes (Hospitalization)
  Sender: FDA-Public Use
  Company Number: AR-ABBVIE-4334107

PATIENT
  Age: 64 Year
  Sex: Female

DRUGS (1)
  1. HUMIRA [Suspect]
     Active Substance: ADALIMUMAB
     Indication: Rheumatoid arthritis
     Dosage: STRENGTH 40 MILLIGRAM
     Route: 058
     Dates: start: 20210203

REACTIONS (4)
  - Mobility decreased [Unknown]
  - Musculoskeletal stiffness [Unknown]
  - Pain [Recovered/Resolved]
  - Haemorrhoids [Recovering/Resolving]

NARRATIVE: CASE EVENT DATE: 20221101
